FAERS Safety Report 5401950-X (Version None)
Quarter: 2007Q3

REPORT INFORMATION
  Report Type: 
  Country: None (occurrence: None)
  Receive Date: 20070731
  Receipt Date: 20070726
  Transmission Date: 20080115
  Serious: Yes (Hospitalization, Other)
  Sender: FDA-Public Use
  Company Number: GB-MERCK-0707GBR00124

PATIENT
  Age: 83 Year
  Sex: Male
  Weight: 45 kg

DRUGS (8)
  1. ZOCOR [Suspect]
     Route: 048
     Dates: start: 20070703
  2. ASPIRIN [Concomitant]
     Route: 048
  3. ATENOLOL [Concomitant]
     Route: 048
  4. DOXAZOSIN MESYLATE [Concomitant]
     Route: 048
  5. EPROSARTAN [Concomitant]
     Route: 048
  6. FLUTICASONE PROPIONATE [Concomitant]
  7. LEVOTHYROXINE SODIUM [Concomitant]
     Route: 048
  8. NICARDIPINE HYDROCHLORIDE [Concomitant]
     Route: 048

REACTIONS (6)
  - BACK PAIN [None]
  - BILE DUCT CANCER [None]
  - DECREASED APPETITE [None]
  - FATIGUE [None]
  - MOBILITY DECREASED [None]
  - RHABDOMYOLYSIS [None]
